FAERS Safety Report 8970488 (Version 1)
Quarter: 2012Q4

REPORT INFORMATION
  Report Type: 
  Country: DK (occurrence: CN)
  Receive Date: 20121218
  Receipt Date: 20121218
  Transmission Date: 20130627
  Serious: Yes (Other)
  Sender: FDA-Public Use
  Company Number: CN-FRI-1000041073

PATIENT
  Age: 50 Year
  Sex: Male

DRUGS (4)
  1. LEXAPRO [Suspect]
     Indication: DEPRESSION
     Dosage: 20 mg
     Route: 048
     Dates: start: 20120919, end: 2012
  2. LEXAPRO [Suspect]
     Dosage: 15 MG
     Route: 048
     Dates: start: 2012, end: 2012
  3. LEXAPRO [Suspect]
     Dosage: 10 mg
     Route: 048
     Dates: start: 2012
  4. BUSPIRONE [Concomitant]
     Dates: end: 2012

REACTIONS (1)
  - Convulsion [Not Recovered/Not Resolved]
